FAERS Safety Report 14678514 (Version 1)
Quarter: 2018Q1

REPORT INFORMATION
  Report Type: Spontaneous
  Country: CA (occurrence: CA)
  Receive Date: 20180326
  Receipt Date: 20180326
  Transmission Date: 20180509
  Serious: Yes (Other)
  Sender: FDA-Public Use
  Company Number: CA-TEVA-2018-CA-874172

PATIENT
  Age: 9 Year
  Sex: Male
  Weight: 51 kg

DRUGS (7)
  1. METHOTREXATE. [Concomitant]
     Active Substance: METHOTREXATE
  2. HYDROCORTISONE. [Concomitant]
     Active Substance: HYDROCORTISONE
  3. DOXORUBICIN HYDROCHLORIDE INJECTION [Suspect]
     Active Substance: DOXORUBICIN HYDROCHLORIDE
     Indication: ACUTE LYMPHOCYTIC LEUKAEMIA
     Route: 042
  4. VINCRISTINE SULFATE. [Concomitant]
     Active Substance: VINCRISTINE SULFATE
  5. PEG-L-ASPARAGINASE [Concomitant]
     Active Substance: PEGASPARGASE
  6. CYTARABINE INJECTION [Concomitant]
     Active Substance: CYTARABINE
  7. MERCAPTOPURINE. [Concomitant]
     Active Substance: MERCAPTOPURINE

REACTIONS (4)
  - Diastolic dysfunction [Unknown]
  - Aortic dilatation [Unknown]
  - Ejection fraction decreased [Unknown]
  - Affective disorder [Unknown]
